FAERS Safety Report 7843151-1 (Version None)
Quarter: 2011Q4

REPORT INFORMATION
  Report Type: 
  Country: None (occurrence: None)
  Receive Date: 20111025
  Receipt Date: 20111024
  Transmission Date: 20120403
  Serious: Yes (Other)
  Sender: FDA-Public Use
  Company Number: US-PFIZER INC-2011128612

PATIENT
  Sex: Female

DRUGS (2)
  1. CHANTIX [Suspect]
     Indication: SMOKING CESSATION THERAPY
     Dosage: UNK
     Dates: start: 20070101, end: 20070301
  2. VALTREX [Concomitant]
     Indication: HERPES ZOSTER
     Dosage: UNK
     Dates: start: 20060101, end: 20100101

REACTIONS (4)
  - AGGRESSION [None]
  - PARANOIA [None]
  - DEPRESSION [None]
  - ANXIETY [None]
